FAERS Safety Report 18931642 (Version 1)
Quarter: 2021Q1

REPORT INFORMATION
  Report Type: Spontaneous
  Country: US (occurrence: US)
  Receive Date: 20210223
  Receipt Date: 20210223
  Transmission Date: 20210420
  Serious: No
  Sender: FDA-Public Use
  Company Number: US-IGSA-SR10010400

PATIENT
  Sex: Male
  Weight: 58 kg

DRUGS (6)
  1. PROLASTIN?C LIQUID [Suspect]
     Active Substance: .ALPHA.1-PROTEINASE INHIBITOR HUMAN
     Dosage: 3480 MG, Q.WK.
     Route: 042
     Dates: start: 20190115
  2. ANORO [Concomitant]
     Active Substance: UMECLIDINIUM BROMIDE\VILANTEROL TRIFENATATE
  3. PROLASTIN?C LIQUID [Suspect]
     Active Substance: .ALPHA.1-PROTEINASE INHIBITOR HUMAN
     Indication: ALPHA-1 ANTITRYPSIN DEFICIENCY
     Dosage: 6960 MG, Q.O.WK.
     Route: 042
     Dates: start: 20200513, end: 20200513
  4. LAXATIVE                           /00064401/ [Concomitant]
     Indication: CONSTIPATION
  5. PROLASTIN?C LIQUID [Suspect]
     Active Substance: .ALPHA.1-PROTEINASE INHIBITOR HUMAN
     Dosage: 3480 MG, Q.WK.
     Route: 042
     Dates: start: 202006
  6. QVAR [Concomitant]
     Active Substance: BECLOMETHASONE DIPROPIONATE

REACTIONS (5)
  - Asthenia [Recovering/Resolving]
  - Oedema peripheral [Recovering/Resolving]
  - Prescribed overdose [Recovered/Resolved]
  - Gait disturbance [Recovering/Resolving]
  - Dysphagia [Recovering/Resolving]

NARRATIVE: CASE EVENT DATE: 2019
